FAERS Safety Report 6944956-1 (Version None)
Quarter: 2010Q3

REPORT INFORMATION
  Report Type: 
  Country: None (occurrence: None)
  Receive Date: 20100827
  Receipt Date: 20100820
  Transmission Date: 20110219
  Serious: Yes (Other)
  Sender: FDA-Public Use
  Company Number: US-SANOFI-AVENTIS-2010SA049941

PATIENT
  Age: 74 Year
  Sex: Female

DRUGS (4)
  1. MULTAQ [Suspect]
     Indication: ATRIAL FIBRILLATION
     Route: 048
     Dates: start: 20090101
  2. VITAMIN B-12 [Concomitant]
  3. CLARITHROMYCIN [Concomitant]
  4. DOXYCYCLINE [Concomitant]

REACTIONS (3)
  - ATRIAL FIBRILLATION [None]
  - CHOKING SENSATION [None]
  - OFF LABEL USE [None]
